FAERS Safety Report 11394867 (Version 3)
Quarter: 2015Q3

REPORT INFORMATION
  Report Type: Spontaneous
  Country: FR (occurrence: FR)
  Receive Date: 20150819
  Receipt Date: 20150908
  Transmission Date: 20151125
  Serious: Yes (Hospitalization)
  Sender: FDA-Public Use
  Company Number: FR-AMGEN-FRASP2015083475

PATIENT
  Age: 2 Year
  Sex: Male
  Weight: 9.7 kg

DRUGS (5)
  1. CLAIRYG [Concomitant]
     Active Substance: HUMAN IMMUNOGLOBULIN G
     Dosage: 1 G/KG, Q3WK
     Route: 058
  2. NPLATE [Suspect]
     Active Substance: ROMIPLOSTIM
     Indication: PRODUCT USED FOR UNKNOWN INDICATION
     Dosage: 250 MUG, UNK
     Route: 058
     Dates: start: 20150518, end: 20150518
  3. TRIDESONIT [Concomitant]
     Active Substance: DESONIDE
  4. BACTRIM [Concomitant]
     Active Substance: SULFAMETHOXAZOLE\TRIMETHOPRIM
     Indication: PROPHYLAXIS
     Route: 048
  5. PLATELETS [Concomitant]
     Active Substance: HUMAN PLATELET, ALLOGENIC

REACTIONS (3)
  - Drug effect delayed [Recovered/Resolved]
  - Type IV hypersensitivity reaction [Recovered/Resolved]
  - Accidental overdose [Unknown]

NARRATIVE: CASE EVENT DATE: 20150615
